FAERS Safety Report 6549576-9 (Version None)
Quarter: 2010Q1

REPORT INFORMATION
  Report Type: 
  Country: None (occurrence: None)
  Receive Date: 20100125
  Receipt Date: 20100118
  Transmission Date: 20100710
  Serious: Yes (Other)
  Sender: FDA-Public Use
  Company Number: US-AMGEN-US343780

PATIENT
  Sex: Female

DRUGS (4)
  1. NPLATE [Suspect]
     Indication: IDIOPATHIC THROMBOCYTOPENIC PURPURA
     Route: 058
     Dates: start: 20090406, end: 20090420
  2. CALCIUM [Concomitant]
  3. VITAMIN D [Concomitant]
  4. UNSPECIFIED HERBAL PRODUCT [Concomitant]
     Dates: start: 20090414

REACTIONS (9)
  - BLISTER [None]
  - CONTUSION [None]
  - DRUG INEFFECTIVE [None]
  - OCULAR HYPERAEMIA [None]
  - OROPHARYNGEAL BLISTERING [None]
  - PETECHIAE [None]
  - PLATELET COUNT ABNORMAL [None]
  - THERAPEUTIC RESPONSE DECREASED [None]
  - URTICARIA [None]
